FAERS Safety Report 23342448 (Version 1)
Quarter: 2023Q4

REPORT INFORMATION
  Report Type: Spontaneous
  Country: DE (occurrence: DE)
  Receive Date: 20231227
  Receipt Date: 20231227
  Transmission Date: 20240110
  Serious: Yes (Other)
  Sender: FDA-Public Use
  Company Number: DE-DCGMA-23202514

PATIENT
  Age: 54 Year
  Sex: Female
  Weight: 63 kg

DRUGS (1)
  1. ENHERTU [Suspect]
     Active Substance: FAM-TRASTUZUMAB DERUXTECAN-NXKI
     Indication: Breast cancer
     Dosage: 300 MG
     Route: 042
     Dates: start: 202311

REACTIONS (9)
  - Polyneuropathy [Recovering/Resolving]
  - Cognitive disorder [Recovering/Resolving]
  - Radiculopathy [Recovering/Resolving]
  - Brain fog [Recovering/Resolving]
  - Muscle fatigue [Recovering/Resolving]
  - Tremor [Recovering/Resolving]
  - Dysgeusia [Recovering/Resolving]
  - Visual impairment [Recovering/Resolving]
  - Asthenia [Recovering/Resolving]

NARRATIVE: CASE EVENT DATE: 20231113
